FAERS Safety Report 7124054-7 (Version None)
Quarter: 2010Q4

REPORT INFORMATION
  Report Type: 
  Country: None (occurrence: None)
  Receive Date: 20101126
  Receipt Date: 20101115
  Transmission Date: 20110411
  Serious: Yes (Hospitalization)
  Sender: FDA-Public Use
  Company Number: ES-ELI_LILLY_AND_COMPANY-ES201011004154

PATIENT
  Sex: Female
  Weight: 55 kg

DRUGS (8)
  1. FORTEO [Suspect]
     Indication: OSTEOPOROSIS
     Dosage: 20 UG, DAILY (1/D)
     Route: 058
     Dates: start: 20090223, end: 20101109
  2. LYRICA [Concomitant]
     Indication: PAIN
     Dosage: 75 MG, 4/D
     Route: 048
     Dates: start: 20080101
  3. XICIL [Concomitant]
     Dosage: UNK, DAILY (1/D)
     Route: 048
     Dates: start: 20080101
  4. IDEOS [Concomitant]
     Indication: OSTEOPOROSIS
     Dosage: UNK, 1/2 TAB A DAY
     Route: 048
  5. CYMBALTA [Concomitant]
     Indication: FIBROMYALGIA
     Dosage: 60 MG, DAILY (1/D)
     Route: 048
     Dates: start: 20100601
  6. OMEPRAZOLE [Concomitant]
     Dosage: 20 MG, DAILY (1/D)
     Route: 048
  7. LORAZEPAM [Concomitant]
     Indication: ANXIETY
     Dosage: 1 MG, 2/D
     Route: 048
  8. NOCTAMID [Concomitant]
     Indication: INSOMNIA
     Dosage: 2 MG, DAILY (1/D)
     Route: 048

REACTIONS (1)
  - ERYTHEMA MULTIFORME [None]
